FAERS Safety Report 11701906 (Version 2)
Quarter: 2016Q1

REPORT INFORMATION
  Report Type: Spontaneous
  Country: FI (occurrence: FI)
  Receive Date: 20151105
  Receipt Date: 20160116
  Transmission Date: 20160525
  Serious: No
  Sender: FDA-Public Use
  Company Number: FI-AMGEN-FINSP2014072547

PATIENT
  Age: 72 Year
  Sex: Female

DRUGS (1)
  1. ARANESP [Suspect]
     Active Substance: DARBEPOETIN ALFA
     Indication: PRODUCT USED FOR UNKNOWN INDICATION
     Dosage: 80 MUG
     Route: 065

REACTIONS (2)
  - Drug dose omission [Unknown]
  - Device failure [Unknown]
